FAERS Safety Report 20312477 (Version 1)
Quarter: 2022Q1

REPORT INFORMATION
  Report Type: Spontaneous
  Country: US (occurrence: None)
  Receive Date: 20220107
  Receipt Date: 20220107
  Transmission Date: 20220424
  Serious: Yes (Other)
  Sender: FDA-Public Use
  Company Number: None

PATIENT
  Age: 74 Year
  Sex: Male

DRUGS (5)
  1. PRIVIGEN [Suspect]
     Active Substance: HUMAN IMMUNOGLOBULIN G
     Dosage: OTHER FREQUENCY : ONCE MONTHLY;?
     Route: 042
     Dates: start: 20211222, end: 20211222
  2. PRIVIGEN [Suspect]
     Active Substance: HUMAN IMMUNOGLOBULIN G
     Dosage: OTHER FREQUENCY : ONCE MONTHLY;?
     Route: 042
  3. Benadryl 25mg [Concomitant]
  4. TYLENOL [Concomitant]
     Active Substance: ACETAMINOPHEN
  5. SOLU-CORTEF [Concomitant]
     Active Substance: HYDROCORTISONE SODIUM SUCCINATE

REACTIONS (4)
  - Infusion related hypersensitivity reaction [None]
  - Pruritus [None]
  - Rash [None]
  - Urticaria [None]

NARRATIVE: CASE EVENT DATE: 20211222
